FAERS Safety Report 6105907-5 (Version None)
Quarter: 2009Q1

REPORT INFORMATION
  Report Type: 
  Country: None (occurrence: None)
  Receive Date: 20090306
  Receipt Date: 20090306
  Transmission Date: 20090719
  Serious: Yes (Other)
  Sender: FDA-Public Use
  Company Number: None

PATIENT
  Sex: Female
  Weight: 58.0604 kg

DRUGS (2)
  1. ACTONEL [Suspect]
     Indication: RESORPTION BONE INCREASED
     Dosage: 150 MG 1 A MONTH
     Dates: start: 20081012
  2. ACTONEL [Suspect]
     Indication: RESORPTION BONE INCREASED
     Dosage: 150 MG 1 A MONTH
     Dates: start: 20081112

REACTIONS (2)
  - ARTHRALGIA [None]
  - MYALGIA [None]
